FAERS Safety Report 9405532 (Version 1)
Quarter: 2013Q3

REPORT INFORMATION
  Report Type: Spontaneous
  Country: FR (occurrence: FR)
  Receive Date: 20130717
  Receipt Date: 20130717
  Transmission Date: 20140515
  Serious: Yes (Life-Threatening, Hospitalization)
  Sender: FDA-Public Use
  Company Number: FR-BAXTER-2013BAX026669

PATIENT
  Age: 65 Year
  Sex: Female

DRUGS (8)
  1. CEPROTIN 1000 UI, POUDRE ET SOLVANT POUR SOLUTION INJECTABLE [Suspect]
     Indication: PROTEIN C DEFICIENCY
     Route: 042
     Dates: start: 20070626, end: 20070628
  2. COUMADINE [Suspect]
     Indication: PRODUCT USED FOR UNKNOWN INDICATION
     Route: 048
  3. FRAXODI [Concomitant]
     Indication: PRODUCT USED FOR UNKNOWN INDICATION
     Route: 058
     Dates: start: 20070623
  4. DETENSIEL [Concomitant]
     Indication: PRODUCT USED FOR UNKNOWN INDICATION
     Route: 048
     Dates: end: 20070628
  5. SKENAN [Concomitant]
     Indication: PRODUCT USED FOR UNKNOWN INDICATION
     Route: 048
     Dates: start: 20070624, end: 20070624
  6. ACTISKENAN [Concomitant]
     Indication: PRODUCT USED FOR UNKNOWN INDICATION
     Route: 048
     Dates: start: 20070624, end: 20070626
  7. PRINIVIL [Concomitant]
     Indication: PRODUCT USED FOR UNKNOWN INDICATION
     Route: 048
     Dates: end: 20070628
  8. AMLOR [Concomitant]
     Indication: PRODUCT USED FOR UNKNOWN INDICATION
     Route: 048
     Dates: end: 20070628

REACTIONS (5)
  - Renal tubular necrosis [Recovered/Resolved]
  - Renal failure acute [Recovered/Resolved]
  - Skin necrosis [Recovered/Resolved]
  - Overdose [Recovered/Resolved]
  - Hyperhomocysteinaemia [Recovered/Resolved]
